FAERS Safety Report 19767588 (Version 2)
Quarter: 2021Q3

REPORT INFORMATION
  Report Type: Spontaneous
  Country: US (occurrence: US)
  Receive Date: 20210831
  Receipt Date: 20210918
  Transmission Date: 20211014
  Serious: No
  Sender: FDA-Public Use
  Company Number: US-LUPIN PHARMACEUTICALS INC.-2021-15818

PATIENT
  Sex: Female

DRUGS (1)
  1. GAVILYTE ? C [Suspect]
     Active Substance: POLYETHYLENE GLYCOL 3350\POTASSIUM CHLORIDE\SODIUM BICARBONATE\SODIUM CHLORIDE\SODIUM SULFATE
     Indication: BOWEL PREPARATION
     Dosage: UNK
     Route: 065

REACTIONS (3)
  - Product dispensing error [Unknown]
  - No adverse event [Unknown]
  - Recalled product administered [Unknown]
